FAERS Safety Report 8326746-0 (Version None)
Quarter: 2012Q2

REPORT INFORMATION
  Report Type: 
  Country: None (occurrence: None)
  Receive Date: 20120501
  Receipt Date: 20120426
  Transmission Date: 20120825
  Serious: Yes (Hospitalization)
  Sender: FDA-Public Use
  Company Number: PHHY2012NL035728

PATIENT
  Age: 55 Year
  Sex: Female

DRUGS (1)
  1. PREDNISONE [Suspect]
     Indication: FACIAL PARESIS
     Dosage: UNK UKN, UNK

REACTIONS (14)
  - TRANSAMINASES INCREASED [None]
  - CHOLECYSTITIS [None]
  - SPLENOMEGALY [None]
  - INFECTIOUS PERITONITIS [None]
  - DEPRESSED LEVEL OF CONSCIOUSNESS [None]
  - GENERAL PHYSICAL HEALTH DETERIORATION [None]
  - HEPATIC NEOPLASM [None]
  - HEPATITIS B [None]
  - HEPATIC FAILURE [None]
  - ASCITES [None]
  - HEPATIC NECROSIS [None]
  - ENCEPHALOPATHY [None]
  - JAUNDICE [None]
  - BLOOD BILIRUBIN INCREASED [None]
